FAERS Safety Report 12784320 (Version 1)
Quarter: 2016Q3

REPORT INFORMATION
  Report Type: Spontaneous
  Country: DE (occurrence: DE)
  Receive Date: 20160927
  Receipt Date: 20160927
  Transmission Date: 20161109
  Serious: Yes (Life-Threatening, Hospitalization, Other)
  Sender: FDA-Public Use
  Company Number: DE-BEH-SAGL/01/03/GFR

PATIENT
  Age: 64 Year
  Sex: Female

DRUGS (3)
  1. SANDOGLOBULIN [Suspect]
     Active Substance: HUMAN IMMUNOGLOBULIN G
     Indication: PLASMACYTOMA
     Dosage: DAILY DOSE QUANTITY: 10, DAILY DOSE UNIT: G
     Route: 042
     Dates: start: 20010113
  2. PULMICORT TURBUHALER [Concomitant]
     Active Substance: BUDESONIDE
  3. VITAMINS [Concomitant]
     Active Substance: VITAMINS

REACTIONS (2)
  - Anaphylactic shock [Unknown]
  - Respiratory failure [Unknown]

NARRATIVE: CASE EVENT DATE: 20010113
